FAERS Safety Report 7494881-5 (Version None)
Quarter: 2011Q2

REPORT INFORMATION
  Report Type: 
  Country: None (occurrence: None)
  Receive Date: 20110520
  Receipt Date: 20110511
  Transmission Date: 20111010
  Serious: Yes (Hospitalization)
  Sender: FDA-Public Use
  Company Number: DE-B.I. PHARMACEUTICALS,INC./RIDGEFIELD-2011-DE-02996DE

PATIENT
  Age: 79 Year
  Sex: Female
  Weight: 97 kg

DRUGS (12)
  1. RAMIPRIL [Concomitant]
     Indication: CORONARY ARTERY DISEASE
     Dosage: 1 ANZ
     Route: 048
     Dates: start: 19900101
  2. NOVALGIN [Concomitant]
     Indication: PAIN
     Dosage: 4 ANZ
     Route: 048
     Dates: start: 20090201
  3. MOXONIDIN [Concomitant]
     Indication: CORONARY ARTERY DISEASE
     Dosage: 1 ANZ
     Route: 048
     Dates: start: 19900101
  4. ALLOPURINOL [Concomitant]
     Indication: HYPERURICAEMIA
     Dosage: 1 ANZ
     Route: 048
     Dates: start: 20010101
  5. ACC 600 [Concomitant]
     Indication: LUNG NEOPLASM MALIGNANT
     Route: 048
     Dates: start: 20090201
  6. PRADAXA [Suspect]
     Indication: THROMBOSIS PROPHYLAXIS
     Dosage: 1 ANZ
     Route: 048
     Dates: start: 20100609, end: 20100609
  7. METOPROLOL SUCCINATE [Concomitant]
     Indication: HYPERTENSION
     Dosage: 100 MG
     Route: 048
     Dates: start: 19900101
  8. SIMVASTATIN [Concomitant]
     Indication: HYPERLIPIDAEMIA
     Dosage: 20 MG
     Route: 048
     Dates: start: 20010101
  9. ASPIRIN [Concomitant]
     Indication: CORONARY ARTERY DISEASE
     Dosage: 1 ANZ
     Route: 048
     Dates: end: 20100604
  10. PRADAXA [Suspect]
     Dosage: 1 ANZ
     Route: 048
     Dates: start: 20100610, end: 20100630
  11. TORSEMIDE [Concomitant]
     Indication: HYPERTENSION
     Dosage: 20 MG
     Route: 048
     Dates: start: 19900101
  12. TRAMAL LONG [Concomitant]
     Indication: PAIN
     Route: 048
     Dates: start: 20100610, end: 20100628

REACTIONS (1)
  - WOUND SECRETION [None]
